FAERS Safety Report 6815202-4 (Version None)
Quarter: 2010Q2

REPORT INFORMATION
  Report Type: 
  Country: None (occurrence: None)
  Receive Date: 20100630
  Receipt Date: 20100630
  Transmission Date: 20101027
  Serious: Yes (Hospitalization)
  Sender: FDA-Public Use
  Company Number: None

PATIENT
  Sex: Female
  Weight: 83.15 kg

DRUGS (3)
  1. IFOSFAMIDE [Suspect]
     Dosage: 8.4 G
  2. TAXOL [Suspect]
     Dosage: 238 MG
  3. NEULASTA [Suspect]
     Dosage: 6 MG

REACTIONS (3)
  - HYPERTENSION [None]
  - INTERVERTEBRAL DISC DEGENERATION [None]
  - NO THERAPEUTIC RESPONSE [None]
